FAERS Safety Report 4788431-1 (Version None)
Quarter: 2005Q3

REPORT INFORMATION
  Report Type: 
  Country: None (occurrence: None)
  Receive Date: 20050920
  Receipt Date: 20050729
  Transmission Date: 20060218
  Serious: No
  Sender: FDA-Public Use
  Company Number: 0205024

PATIENT
  Age: 67 Year
  Sex: Female

DRUGS (4)
  1. DEPODUR [Suspect]
     Indication: POSTOPERATIVE ANALGESIA
     Dosage: 12 MG (ONCE) EPIDURAL
     Route: 008
     Dates: start: 20050701, end: 20050701
  2. PROPOFOL [Concomitant]
  3. VERSED [Concomitant]
  4. FENTANYL [Concomitant]

REACTIONS (5)
  - HYPOTENSION [None]
  - OXYGEN SATURATION DECREASED [None]
  - SEDATION [None]
  - TACHYCARDIA [None]
  - URINE OUTPUT DECREASED [None]
